FAERS Safety Report 8143703-8 (Version None)
Quarter: 2012Q1

REPORT INFORMATION
  Report Type: 
  Country: None (occurrence: None)
  Receive Date: 20120103
  Receipt Date: 20110908
  Transmission Date: 20120608
  Serious: No
  Sender: FDA-Public Use
  Company Number: AE-2011-001421

PATIENT
  Age: 55 Year
  Sex: Male
  Weight: 97.977 kg

DRUGS (7)
  1. TRAZODONE HCL [Concomitant]
  2. PEGASYS [Concomitant]
  3. HYDROCHLOROTHIAZIDE [Concomitant]
  4. FLONASE [Concomitant]
  5. INCIVEK [Suspect]
     Dosage: 2250 MG (750 MG, 1 IN 8 HR), ORAL
     Route: 048
     Dates: start: 20110907
  6. DEPAKOTE [Concomitant]
  7. RIBAVIRIN [Concomitant]

REACTIONS (1)
  - VOMITING [None]
